FAERS Safety Report 8518344-0 (Version None)
Quarter: 2012Q3

REPORT INFORMATION
  Report Type: 
  Country: None (occurrence: None)
  Receive Date: 20120718
  Receipt Date: 20120323
  Transmission Date: 20120928
  Serious: Yes (Hospitalization)
  Sender: FDA-Public Use
  Company Number: US-BRISTOL-MYERS SQUIBB COMPANY-16389876

PATIENT
  Age: 30 Year
  Sex: Male

DRUGS (2)
  1. ENOXAPARIN [Suspect]
     Dosage: DOSE:130MG Q12
  2. COUMADIN [Suspect]
     Indication: DEEP VEIN THROMBOSIS
     Dosage: DOSEINCREASED:15MG DAILY
     Route: 048
     Dates: start: 20120203

REACTIONS (1)
  - INTERNATIONAL NORMALISED RATIO DECREASED [None]
